FAERS Safety Report 5369003-7 (Version None)
Quarter: 2007Q2

REPORT INFORMATION
  Report Type: 
  Country: None (occurrence: None)
  Receive Date: 20070614
  Receipt Date: 20070424
  Transmission Date: 20071010
  Serious: Yes (Other)
  Sender: FDA-Public Use
  Company Number: 1000306051-2007-00001

PATIENT
  Age: 58 Year
  Sex: Female

DRUGS (2)
  1. SKIN TISSUE HUMAN [Suspect]
  2. SKIN TISSUE HUMAN [Suspect]

REACTIONS (4)
  - EXCESSIVE GRANULATION TISSUE [None]
  - GRAFT COMPLICATION [None]
  - INFLAMMATION [None]
  - WOUND DRAINAGE [None]
